FAERS Safety Report 8521277-7 (Version None)
Quarter: 2012Q3

REPORT INFORMATION
  Report Type: 
  Country: None (occurrence: None)
  Receive Date: 20120719
  Receipt Date: 20120706
  Transmission Date: 20120928
  Serious: Yes (Hospitalization)
  Sender: FDA-Public Use
  Company Number: DE-ROCHE-1088802

PATIENT
  Age: 13 Year
  Sex: Male

DRUGS (2)
  1. NUTROPIN AQ [Suspect]
     Indication: GROWTH HORMONE DEFICIENCY
     Dosage: 10 MG/ 2 ML
     Route: 058
     Dates: start: 20051013
  2. NUTROPIN AQ [Suspect]
     Route: 058
     Dates: start: 20120701

REACTIONS (2)
  - VOMITING [None]
  - NAUSEA [None]
